FAERS Safety Report 9773727 (Version 1)
Quarter: 2013Q4

REPORT INFORMATION
  Report Type: Spontaneous
  Country: AU (occurrence: None)
  Receive Date: 20131218
  Receipt Date: 20131218
  Transmission Date: 20140711
  Serious: Yes (Other)
  Sender: FDA-Public Use
  Company Number: 2013000338

PATIENT
  Sex: Female

DRUGS (7)
  1. ACEON (PERINDOPRIL ERBUMINE) TABLET [Suspect]
     Indication: PRODUCT USED FOR UNKNOWN INDICATION
  2. CALTRATE + D (CALCIUM CARBONATE, COLECALCIFERON) [Concomitant]
  3. GLUCOSAMINE (GLUCOSAMINE) [Concomitant]
  4. INDAPAMIDE (INDAPAMIDE) [Concomitant]
  5. MELOXICAM (MELOXICAM) [Concomitant]
  6. PARACETAMOL (PARACETAMOL) [Concomitant]
  7. VERAPAMIL (VERAPAMIL) [Concomitant]

REACTIONS (3)
  - Rash erythematous [None]
  - Pruritus [None]
  - Swollen tongue [None]
